FAERS Safety Report 25103994 (Version 1)
Quarter: 2025Q1

REPORT INFORMATION
  Report Type: Spontaneous
  Country: US (occurrence: US)
  Receive Date: 20250321
  Receipt Date: 20250321
  Transmission Date: 20250409
  Serious: No
  Sender: BAXTER
  Company Number: US-BAXTER-2025BAX012610

PATIENT

DRUGS (1)
  1. HEPARIN SODIUM [Suspect]
     Active Substance: HEPARIN SODIUM
     Route: 065

REACTIONS (1)
  - Activated partial thromboplastin time prolonged [Recovered/Resolved]
